FAERS Safety Report 10891371 (Version 1)
Quarter: 2015Q1

REPORT INFORMATION
  Report Type: Spontaneous
  Country: US (occurrence: US)
  Receive Date: 20150306
  Receipt Date: 20150306
  Transmission Date: 20150721
  Serious: No
  Sender: FDA-Public Use
  Company Number: US-009507513-1502USA003973

PATIENT
  Age: 72 Year
  Sex: Male

DRUGS (2)
  1. DULERA [Suspect]
     Active Substance: FORMOTEROL FUMARATE DIHYDRATE\MOMETASONE FUROATE
     Indication: ASTHMA
     Dosage: UNK
     Route: 055
     Dates: start: 20150107, end: 20150202
  2. METOPROLOL [Concomitant]
     Active Substance: METOPROLOL
     Indication: HYPERTENSION
     Dosage: UNK

REACTIONS (7)
  - Dizziness [Recovering/Resolving]
  - Peripheral swelling [Recovering/Resolving]
  - Activities of daily living impaired [Recovering/Resolving]
  - Rash pruritic [Recovering/Resolving]
  - Nausea [Recovering/Resolving]
  - Rash [Recovering/Resolving]
  - Decreased appetite [Recovering/Resolving]

NARRATIVE: CASE EVENT DATE: 2015
